FAERS Safety Report 24880712 (Version 2)
Quarter: 2025Q3

REPORT INFORMATION
  Report Type: Spontaneous
  Country: US (occurrence: US)
  Receive Date: 20250123
  Receipt Date: 20250925
  Transmission Date: 20251021
  Serious: No
  Sender: SANOFI AVENTIS
  Company Number: US-SA-2025SA020807

PATIENT
  Age: 13 Year
  Sex: Male
  Weight: 40.91 kg

DRUGS (1)
  1. CEREZYME [Suspect]
     Active Substance: IMIGLUCERASE
     Indication: Gaucher^s disease
     Dosage: 2000 (UNITS NOT PROVIDED) TOTAL DOSE ADMINISTERED, QOW
     Route: 042
     Dates: start: 20200316

REACTIONS (2)
  - Weight increased [Unknown]
  - Weight increased [Unknown]

NARRATIVE: CASE EVENT DATE: 20250101
